FAERS Safety Report 8159062-0 (Version None)
Quarter: 2012Q1

REPORT INFORMATION
  Report Type: 
  Country: None (occurrence: None)
  Receive Date: 20120223
  Receipt Date: 20120219
  Transmission Date: 20120608
  Serious: No
  Sender: FDA-Public Use
  Company Number: US-TEVA-323804USA

PATIENT
  Sex: Female
  Weight: 48.578 kg

DRUGS (3)
  1. YAZ [Concomitant]
     Indication: MENSTRUATION IRREGULAR
     Route: 048
  2. PLAN B ONE-STEP [Suspect]
     Indication: POST COITAL CONTRACEPTION
     Dosage: 1.5 MILLIGRAM;
     Route: 048
     Dates: start: 20120217, end: 20120217
  3. YAZ [Concomitant]
     Indication: DYSMENORRHOEA

REACTIONS (1)
  - MENSTRUATION IRREGULAR [None]
